FAERS Safety Report 23878640 (Version 3)
Quarter: 2024Q3

REPORT INFORMATION
  Report Type: Report from Study
  Country: US (occurrence: US)
  Receive Date: 20240521
  Receipt Date: 20240819
  Transmission Date: 20241016
  Serious: Yes (Other)
  Sender: MYLAN
  Company Number: US-MYLANLABS-2024M1045429

PATIENT
  Age: 21 Year
  Sex: Female
  Weight: 79.8 kg

DRUGS (3)
  1. CLOZAPINE [Suspect]
     Active Substance: CLOZAPINE
     Indication: Psychotic disorder
     Dosage: 350 MILLIGRAM, QD (100MG AM, 250MG HS)
     Route: 065
  2. CLOZAPINE [Suspect]
     Active Substance: CLOZAPINE
     Indication: Schizophrenia
  3. KLONOPIN [Concomitant]
     Active Substance: CLONAZEPAM
     Indication: Catatonia
     Dosage: 0.5 MILLIGRAM, BID
     Route: 065

REACTIONS (3)
  - Neutropenia [Recovering/Resolving]
  - Tachycardia [Unknown]
  - Constipation [Unknown]

NARRATIVE: CASE EVENT DATE: 20240514
